FAERS Safety Report 15824727 (Version 2)
Quarter: 2019Q1

REPORT INFORMATION
  Report Type: Report from Study
  Country: AU (occurrence: AU)
  Receive Date: 20190115
  Receipt Date: 20190219
  Transmission Date: 20190417
  Serious: Yes (Hospitalization)
  Sender: FDA-Public Use
  Company Number: AU-ROCHE-2242978

PATIENT
  Age: 75 Year
  Sex: Male
  Weight: 110 kg

DRUGS (2)
  1. RO 6870810 (BET INHIBITOR) [Suspect]
     Active Substance: RO-6870810
     Indication: DIFFUSE LARGE B-CELL LYMPHOMA REFRACTORY
     Dosage: DATE OF MOST RECENT DOSE WAS ON 01/JAN/2019 AT 10.00
     Route: 058
     Dates: start: 20180301
  2. VENETOCLAX. [Suspect]
     Active Substance: VENETOCLAX
     Indication: DIFFUSE LARGE B-CELL LYMPHOMA REFRACTORY
     Dosage: DATE OF MOST RECENT DOSE PRIOR TO EVENT ONSET WAS 07/JAN/2019 AT 11.00
     Route: 048
     Dates: start: 20180301

REACTIONS (2)
  - Hepatic function abnormal [Recovered/Resolved]
  - Asthenia [Recovered/Resolved]

NARRATIVE: CASE EVENT DATE: 20190107
